FAERS Safety Report 15111462 (Version 2)
Quarter: 2018Q3

REPORT INFORMATION
  Report Type: Report from Study
  Country: ES (occurrence: ES)
  Receive Date: 20180705
  Receipt Date: 20180904
  Transmission Date: 20181010
  Serious: Yes (Death, Hospitalization)
  Sender: FDA-Public Use
  Company Number: ES-ELI_LILLY_AND_COMPANY-ES201806013479

PATIENT
  Sex: Female

DRUGS (1)
  1. TERIPARATIDE [Suspect]
     Active Substance: TERIPARATIDE
     Indication: OSTEOPOROSIS
     Dosage: 20 UG, DAILY
     Route: 058
     Dates: start: 20160612, end: 20160612

REACTIONS (16)
  - Chronic kidney disease [Unknown]
  - Interstitial lung disease [Unknown]
  - Respiratory failure [Unknown]
  - Blood pressure decreased [Not Recovered/Not Resolved]
  - Myocardial infarction [Unknown]
  - Arterial occlusive disease [Not Recovered/Not Resolved]
  - Rheumatoid arthritis [Unknown]
  - General physical health deterioration [Unknown]
  - Acute coronary syndrome [Unknown]
  - Ejection fraction decreased [Unknown]
  - Increased bronchial secretion [Not Recovered/Not Resolved]
  - Pneumonia [Unknown]
  - Hypertension [Unknown]
  - Cardiogenic shock [Fatal]
  - Acute pulmonary oedema [Unknown]
  - Orthopnoea [Unknown]
